FAERS Safety Report 5076960-5 (Version None)
Quarter: 2006Q3

REPORT INFORMATION
  Report Type: 
  Country: None (occurrence: None)
  Receive Date: 20060810
  Receipt Date: 20060803
  Transmission Date: 20061208
  Serious: Yes (Hospitalization)
  Sender: FDA-Public Use
  Company Number: US-GLAXOSMITHKLINE-A0615811A

PATIENT
  Sex: Female
  Weight: 2.6 kg

DRUGS (4)
  1. ZIDOVUDINE [Suspect]
     Indication: HIV INFECTION
     Dosage: 1875MG PER DAY
     Dates: start: 20060217
  2. EFAVIRENZ [Concomitant]
     Indication: HIV INFECTION
     Dosage: 600MG PER DAY
     Dates: end: 20050727
  3. TENOFOVIR DISOPROXIL FUMARATE [Concomitant]
     Indication: HIV INFECTION
     Dosage: 300MG PER DAY
     Dates: end: 20050727
  4. EMTRICITABINE [Concomitant]
     Dosage: 200MG PER DAY
     Dates: end: 20050725

REACTIONS (2)
  - DRUG EXPOSURE DURING PREGNANCY [None]
  - MECONIUM IN AMNIOTIC FLUID [None]
